FAERS Safety Report 19651979 (Version 2)
Quarter: 2021Q4

REPORT INFORMATION
  Report Type: Spontaneous
  Country: NL (occurrence: NL)
  Receive Date: 20210803
  Receipt Date: 20211209
  Transmission Date: 20220303
  Serious: Yes (Death)
  Sender: FDA-Public Use
  Company Number: None

PATIENT
  Age: 29 Year
  Sex: Male
  Weight: 85 kg

DRUGS (1)
  1. CARBAMAZEPINE [Suspect]
     Active Substance: CARBAMAZEPINE
     Indication: Epilepsy
     Dosage: UNKNOWN, THERAPY START AND END DATE: ASKU, BRAND NAME NOT SPECIFIED
     Route: 065

REACTIONS (2)
  - Malaise [Fatal]
  - Epilepsy [Fatal]

NARRATIVE: CASE EVENT DATE: 20210710
